FAERS Safety Report 5286932-3 (Version None)
Quarter: 2007Q2

REPORT INFORMATION
  Report Type: 
  Country: None (occurrence: None)
  Receive Date: 20070404
  Receipt Date: 20070330
  Transmission Date: 20071010
  Serious: Yes (Hospitalization)
  Sender: FDA-Public Use
  Company Number: US-MERCK-0703USA03826

PATIENT
  Age: 68 Year
  Sex: Female

DRUGS (4)
  1. FOSAMAX [Suspect]
     Indication: OSTEOPOROSIS
     Route: 048
     Dates: start: 19990101
  2. LIPITOR [Concomitant]
     Route: 065
  3. ZYRTEC [Concomitant]
     Route: 065
  4. ANALGESIC OR ANESTHETIC (UNSPECIFIED) [Concomitant]
     Route: 065

REACTIONS (4)
  - BACK DISORDER [None]
  - COUGH [None]
  - DRUG INEFFECTIVE [None]
  - THORACIC VERTEBRAL FRACTURE [None]
